FAERS Safety Report 6220862-5 (Version None)
Quarter: 2009Q2

REPORT INFORMATION
  Report Type: 
  Country: None (occurrence: None)
  Receive Date: 20090610
  Receipt Date: 20090602
  Transmission Date: 20091009
  Serious: Yes (Hospitalization, Other)
  Sender: FDA-Public Use
  Company Number: PHHO2007DK17013

PATIENT
  Sex: Male

DRUGS (2)
  1. RAD 666 RAD++PTR [Suspect]
     Indication: LUNG TRANSPLANT
     Dosage: 0.5 MG, BID
     Route: 048
     Dates: start: 20070817, end: 20071228
  2. NEORAL [Concomitant]
     Indication: LUNG TRANSPLANT
     Dosage: 50 MG, BID
     Route: 048

REACTIONS (8)
  - ASPERGILLOSIS [None]
  - DYSPNOEA [None]
  - FORCED EXPIRATORY VOLUME DECREASED [None]
  - NASOPHARYNGITIS [None]
  - OEDEMA [None]
  - PULMONARY EMBOLISM [None]
  - PULMONARY FUNCTION TEST DECREASED [None]
  - RESPIRATORY TRACT INFECTION VIRAL [None]
